FAERS Safety Report 13176944 (Version 1)
Quarter: 2017Q1

REPORT INFORMATION
  Report Type: Spontaneous
  Country: US (occurrence: US)
  Receive Date: 20170201
  Receipt Date: 20170201
  Transmission Date: 20170428
  Serious: Yes (Other)
  Sender: FDA-Public Use
  Company Number: US-VIFOR (INTERNATIONAL) INC.-VIT-2017-00792

PATIENT
  Sex: Female

DRUGS (23)
  1. CARVEDILOL. [Concomitant]
     Active Substance: CARVEDILOL
  2. CODEINE PHOSPHATE/PARACETAMOL [Concomitant]
  3. NIFEDIPINE. [Concomitant]
     Active Substance: NIFEDIPINE
  4. LOSARTAN. [Concomitant]
     Active Substance: LOSARTAN
  5. AMLODIPINE [Concomitant]
     Active Substance: AMLODIPINE BESYLATE
  6. ATORVASTATIN [Concomitant]
     Active Substance: ATORVASTATIN
  7. EFFIENT [Concomitant]
     Active Substance: PRASUGREL HYDROCHLORIDE
  8. CLONIDINE. [Concomitant]
     Active Substance: CLONIDINE
  9. FUROSEMIDE. [Concomitant]
     Active Substance: FUROSEMIDE
  10. CLOPIDOGREL [Concomitant]
     Active Substance: CLOPIDOGREL BISULFATE
  11. HUMALOG [Concomitant]
     Active Substance: INSULIN LISPRO
  12. FOLIC ACID. [Concomitant]
     Active Substance: FOLIC ACID
  13. PARACETAMOL/HYDROCODONE [Concomitant]
  14. LANTUS [Concomitant]
     Active Substance: INSULIN GLARGINE
  15. VELTASSA [Suspect]
     Active Substance: PATIROMER
     Indication: HYPERKALAEMIA
     Route: 048
     Dates: start: 20161025
  16. LEVOTHYROXINE. [Concomitant]
     Active Substance: LEVOTHYROXINE
  17. SODIUM BICARBONATE. [Concomitant]
     Active Substance: SODIUM BICARBONATE
  18. DOCUSATE SODIUM. [Concomitant]
     Active Substance: DOCUSATE SODIUM
  19. DIVALPROEX [Concomitant]
     Active Substance: DIVALPROEX SODIUM
  20. PROAIR HFA [Concomitant]
     Active Substance: ALBUTEROL SULFATE
  21. RANITIDINE. [Concomitant]
     Active Substance: RANITIDINE
  22. LEVEMIR [Concomitant]
     Active Substance: INSULIN DETEMIR
  23. FLUTICASONE. [Concomitant]
     Active Substance: FLUTICASONE

REACTIONS (1)
  - Dialysis [Recovered/Resolved]
